FAERS Safety Report 15203710 (Version 1)
Quarter: 2018Q3

REPORT INFORMATION
  Report Type: Spontaneous
  Country: GB (occurrence: GB)
  Receive Date: 20180726
  Receipt Date: 20180726
  Transmission Date: 20181010
  Serious: Yes (Disabling)
  Sender: FDA-Public Use
  Company Number: GB-TEVA-2018-GB-930921

PATIENT
  Age: 55 Year
  Sex: Male
  Weight: 64 kg

DRUGS (22)
  1. OMACOR [Concomitant]
     Active Substance: OMEGA-3-ACID ETHYL ESTERS
     Dosage: 4 DOSAGE FORMS DAILY;
     Dates: start: 20170724
  2. ATORVASTATIN [Concomitant]
     Active Substance: ATORVASTATIN
     Dosage: 1 DOSAGE FORMS DAILY; AT NIGHT
     Dates: start: 20170724
  3. LEVOTHYROXINE. [Concomitant]
     Active Substance: LEVOTHYROXINE
     Dosage: 1 DOSAGE FORMS DAILY;
     Dates: start: 20170724
  4. NOVOMIX [Concomitant]
     Active Substance: INSULIN ASPART
     Dosage: AS DIRECTED
     Dates: start: 20171122
  5. SANDO?K [Concomitant]
     Active Substance: POTASSIUM BICARBONATE\POTASSIUM CHLORIDE
     Dosage: 2 DOSAGE FORMS DAILY;
     Dates: start: 20170724
  6. FELODIPINE. [Concomitant]
     Active Substance: FELODIPINE
     Dosage: 1 DOSAGE FORMS DAILY;
     Dates: start: 20180115
  7. CO?AMOXICLAV [Concomitant]
     Active Substance: AMOXICILLIN\CLAVULANATE POTASSIUM
     Dosage: 3 DOSAGE FORMS DAILY;
     Dates: start: 20180411, end: 20180418
  8. DULOXETINE. [Suspect]
     Active Substance: DULOXETINE
     Dosage: 40 MILLIGRAM DAILY;
     Dates: start: 20180620
  9. HYDROCORTISONE. [Concomitant]
     Active Substance: HYDROCORTISONE
     Dosage: TAKE AS DIRECTED BY THE HOSPITAL
     Dates: start: 20180310
  10. HYDROXOCOBALAMIN [Concomitant]
     Active Substance: HYDROXOCOBALAMIN
     Dosage: USE AS DIRECTED
     Dates: start: 20180612, end: 20180613
  11. ADCAL [Concomitant]
     Active Substance: CALCIUM CARBONATE
     Dosage: 6 DOSAGE FORMS DAILY; LEMON
     Dates: start: 20170724
  12. FUCIDIN [Concomitant]
     Active Substance: FUSIDIC ACID
     Dosage: 2 DOSAGE FORMS DAILY; APPLY BD TO SORE AREA ON BACK FOR UP TO 14 DAYS
     Dates: start: 20180627
  13. ACICLOVIR [Concomitant]
     Active Substance: ACYCLOVIR
     Dosage: 5 DOSAGE FORMS DAILY;
     Dates: start: 20180328, end: 20180418
  14. CITALOPRAM [Concomitant]
     Active Substance: CITALOPRAM HYDROBROMIDE
     Dosage: 1 DOSAGE FORMS DAILY;
     Dates: start: 20180328, end: 20180418
  15. CLOPIDOGREL [Concomitant]
     Active Substance: CLOPIDOGREL BISULFATE
     Dosage: 1 DOSAGE FORMS DAILY;
     Dates: start: 20180212
  16. DERMOL [Concomitant]
     Active Substance: BENZALKONIUM CHLORIDE\CHLORHEXIDINE HYDROCHLORIDE\ISOPROPYL MYRISTATE\PARAFFIN
     Dosage: USE TO WASH SKIN AND AS LEAVE ON EMOLLIENT PRN
     Dates: start: 20170724
  17. ACNECIDE [Concomitant]
     Active Substance: BENZOYL PEROXIDE
     Dosage: USE TO WASH SKIN OF UPPER CHEST IN SHOWER
     Dates: start: 20180606, end: 20180613
  18. FENOFIBRATE. [Concomitant]
     Active Substance: FENOFIBRATE
     Dosage: 12 DOSAGE FORMS DAILY;
     Dates: start: 20170724
  19. CAPSAICIN. [Concomitant]
     Active Substance: CAPSAICIN
     Dosage: APPLY 3?4 TIMES/DAY
     Dates: start: 20180606, end: 20180616
  20. FLUDROCORTISONE [Concomitant]
     Active Substance: FLUDROCORTISONE
     Dosage: 1 DOSAGE FORMS DAILY;
     Dates: start: 20171122
  21. COCODAMOL [Concomitant]
     Active Substance: ACETAMINOPHEN\CODEINE PHOSPHATE
     Dosage: TAKE 1 OR 2
     Dates: start: 20180501, end: 20180529
  22. RAMIPRIL. [Concomitant]
     Active Substance: RAMIPRIL
     Dosage: 1 DOSAGE FORMS DAILY;
     Dates: start: 20180115

REACTIONS (1)
  - Bradykinesia [Recovering/Resolving]

NARRATIVE: CASE EVENT DATE: 20180620
